FAERS Safety Report 7708347-8 (Version None)
Quarter: 2011Q3

REPORT INFORMATION
  Report Type: 
  Country: None (occurrence: None)
  Receive Date: 20110825
  Receipt Date: 20110816
  Transmission Date: 20111222
  Serious: Yes (Other)
  Sender: FDA-Public Use
  Company Number: DE-BRISTOL-MYERS SQUIBB COMPANY-15973563

PATIENT
  Sex: Male

DRUGS (3)
  1. REYATAZ [Suspect]
     Indication: HIV INFECTION
     Dosage: INITIAL DOSE:400MG. THEN TO 300MG
  2. ISENTRESS [Suspect]
  3. NORVIR [Suspect]

REACTIONS (7)
  - POLLAKIURIA [None]
  - SLEEP DISORDER [None]
  - OCULAR ICTERUS [None]
  - LIVER FUNCTION TEST ABNORMAL [None]
  - PRURITUS [None]
  - GASTRITIS [None]
  - GLAUCOMA [None]
